FAERS Safety Report 5475640-1 (Version None)
Quarter: 2007Q4

REPORT INFORMATION
  Report Type: 
  Country: None (occurrence: None)
  Receive Date: 20071003
  Receipt Date: 20070924
  Transmission Date: 20080405
  Serious: Yes (Other)
  Sender: FDA-Public Use
  Company Number: US-AMGEN-US241675

PATIENT
  Sex: Male
  Weight: 65 kg

DRUGS (12)
  1. SENSIPAR [Suspect]
     Indication: HYPERPARATHYROIDISM SECONDARY
     Route: 048
     Dates: start: 20070816, end: 20070831
  2. ASPIRIN [Concomitant]
  3. BENADRYL [Concomitant]
  4. LIDODERM [Concomitant]
  5. LISINOPRIL [Concomitant]
  6. NITROGLYCERIN [Concomitant]
  7. OXYCODONE HCL [Concomitant]
  8. PLAVIX [Concomitant]
  9. RENAGEL [Concomitant]
  10. TOPROL-XL [Concomitant]
  11. VYTORIN [Concomitant]
  12. EPOGEN [Concomitant]

REACTIONS (1)
  - LEUKOCYTOCLASTIC VASCULITIS [None]
